FAERS Safety Report 6695359-9 (Version None)
Quarter: 2010Q2

REPORT INFORMATION
  Report Type: 
  Country: None (occurrence: None)
  Receive Date: 20100423
  Receipt Date: 20100423
  Transmission Date: 20101027
  Serious: No
  Sender: FDA-Public Use
  Company Number: None

PATIENT
  Sex: Female

DRUGS (1)
  1. XOLAIR [Suspect]
     Indication: ASTHMA
     Dosage: 375 MG SUBQ Q2WKS  (1ST INJECTION)
     Route: 058

REACTIONS (5)
  - DYSPNOEA [None]
  - LIP SWELLING [None]
  - PRURITUS [None]
  - RASH [None]
  - VOMITING [None]
